FAERS Safety Report 21886246 (Version 1)
Quarter: 2023Q1

REPORT INFORMATION
  Report Type: Spontaneous
  Country: US (occurrence: None)
  Receive Date: 20230119
  Receipt Date: 20230119
  Transmission Date: 20230417
  Serious: Yes (Disabling)
  Sender: FDA-Public Use
  Company Number: None

PATIENT
  Age: 31 Year
  Sex: Female
  Weight: 54.43 kg

DRUGS (1)
  1. MIRENA [Suspect]
     Active Substance: LEVONORGESTREL
     Dates: start: 20170301, end: 20220103

REACTIONS (4)
  - Diminished ovarian reserve [None]
  - Amenorrhoea [None]
  - Endometrial atrophy [None]
  - Infertility female [None]

NARRATIVE: CASE EVENT DATE: 20211201
